FAERS Safety Report 6235950-7 (Version None)
Quarter: 2009Q2

REPORT INFORMATION
  Report Type: 
  Country: None (occurrence: None)
  Receive Date: 20090617
  Receipt Date: 20090617
  Transmission Date: 20091009
  Serious: Yes (Hospitalization)
  Sender: FDA-Public Use
  Company Number: None

PATIENT
  Age: 8 Year
  Sex: Female
  Weight: 25.4014 kg

DRUGS (3)
  1. LEVETIRACETAM [Suspect]
     Indication: EPILEPSY
     Dosage: 5 ML BID PO
     Route: 048
     Dates: start: 20090501, end: 20090615
  2. LEVETRICETAM [Concomitant]
  3. KEPPRA [Concomitant]

REACTIONS (2)
  - COMPLEX PARTIAL SEIZURES [None]
  - PRODUCT SUBSTITUTION ISSUE [None]
